FAERS Safety Report 9249239 (Version 1)
Quarter: 2013Q2

REPORT INFORMATION
  Report Type: Spontaneous
  Country: US (occurrence: US)
  Receive Date: 20130423
  Receipt Date: 20130423
  Transmission Date: 20140414
  Serious: No
  Sender: FDA-Public Use
  Company Number: US-BAYER-2013-050735

PATIENT
  Age: 47 Year
  Sex: Female
  Weight: 56.69 kg

DRUGS (13)
  1. ALEVE CAPLET [Suspect]
     Indication: ANALGESIC THERAPY
     Dosage: 2 DF, BID
     Route: 048
     Dates: start: 2008
  2. ALEVE LIQUID GELS [Suspect]
     Indication: ANALGESIC THERAPY
     Dosage: 2 DF, BID
     Route: 048
     Dates: start: 2008
  3. OMEPRAZOLE [Concomitant]
  4. TYLENOL [PARACETAMOL] [Concomitant]
  5. CYMBALTA [Concomitant]
  6. HYDROCODONE [Concomitant]
  7. TRAMADOL [Concomitant]
  8. SENNA [Concomitant]
  9. FISH OIL [Concomitant]
  10. ACIDOPHILUS [Concomitant]
  11. CALCIUM [Concomitant]
  12. LEVOTHYROXINE [Concomitant]
  13. CLONAZEPAM [Concomitant]

REACTIONS (3)
  - Drug ineffective [None]
  - Incorrect drug administration duration [None]
  - Incorrect dose administered [None]
